FAERS Safety Report 11988352 (Version 2)
Quarter: 2016Q2

REPORT INFORMATION
  Report Type: Spontaneous
  Country: US (occurrence: US)
  Receive Date: 20160202
  Receipt Date: 20160510
  Transmission Date: 20160815
  Serious: No
  Sender: FDA-Public Use
  Company Number: US-PFIZER INC-2016006906

PATIENT
  Age: 69 Year
  Sex: Male
  Weight: 89.81 kg

DRUGS (9)
  1. NEURONTIN [Suspect]
     Active Substance: GABAPENTIN
     Indication: PARAESTHESIA
     Dosage: UNK  (1 AT HS)
  2. LISINOPRIL. [Concomitant]
     Active Substance: LISINOPRIL
     Dosage: 10 MG, DAILY (EVERY AM )
  3. NEURONTIN [Suspect]
     Active Substance: GABAPENTIN
     Indication: NERVE INJURY
     Dosage: 300 MG TWO CAPSULES THREE TIMES DAILY AND ONE CAPSULE AT BED TIME
     Dates: start: 2013
  4. FLOMAX [Concomitant]
     Active Substance: TAMSULOSIN HYDROCHLORIDE
     Indication: PROSTATOMEGALY
     Dosage: 0.4 MG, DAILY (1 CAPSULE AT BEDTIME )
     Dates: start: 201401
  5. MELOXICAM. [Concomitant]
     Active Substance: MELOXICAM
     Dosage: 15 MG, 1X/DAY (? TABLET 1X DAILY )
  6. NIACIN. [Concomitant]
     Active Substance: NIACIN
     Dosage: 500 MG, 2X/DAY (EVERY AM AND 1 EVERY PM  )
  7. NEURONTIN [Suspect]
     Active Substance: GABAPENTIN
     Indication: SPINAL CORD INJURY
  8. FISH OIL [Concomitant]
     Active Substance: FISH OIL
     Dosage: 1000 MG, UNK (1 EVERY AM AND EVERY PM)
  9. NEURONTIN [Suspect]
     Active Substance: GABAPENTIN
     Indication: NEUROPATHY PERIPHERAL
     Dosage: 300 MG, 3X/DAY
     Dates: start: 20131223

REACTIONS (2)
  - Drug ineffective for unapproved indication [Not Recovered/Not Resolved]
  - Product use issue [Unknown]

NARRATIVE: CASE EVENT DATE: 20131223
